FAERS Safety Report 24147306 (Version 1)
Quarter: 2024Q3

REPORT INFORMATION
  Report Type: Spontaneous
  Country: US (occurrence: US)
  Receive Date: 20240729
  Receipt Date: 20240729
  Transmission Date: 20241017
  Serious: Yes (Life-Threatening, Hospitalization)
  Sender: MYLAN
  Company Number: US-MYLANLABS-2024M1069405

PATIENT
  Age: 9 Year
  Sex: Male

DRUGS (2)
  1. EPINEPHRINE [Suspect]
     Active Substance: EPINEPHRINE
     Indication: Pulse abnormal
     Dosage: UNK
     Route: 065
  2. MILRINONE [Suspect]
     Active Substance: MILRINONE
     Indication: Cardiac failure
     Dosage: UNK, INTRAVENOUS INFUSION
     Route: 042

REACTIONS (1)
  - Drug ineffective [Unknown]
